FAERS Safety Report 23601532 (Version 1)
Quarter: 2024Q1

REPORT INFORMATION
  Report Type: Spontaneous
  Country: US (occurrence: US)
  Receive Date: 20240306
  Receipt Date: 20240306
  Transmission Date: 20240409
  Serious: Yes (Hospitalization, Other)
  Sender: FDA-Public Use
  Company Number: US-FreseniusKabi-FK202403617

PATIENT
  Age: 46 Year
  Sex: Female

DRUGS (1)
  1. CYTARABINE [Suspect]
     Active Substance: CYTARABINE
     Indication: Acute myeloid leukaemia
     Dosage: HAS RECEIVED HIGH DOSE CYTARABINE CONSOLIDATION CHEMOTHERAPY 10 DAYS BEFORE PRESENTATION.

REACTIONS (1)
  - Pulmonary toxicity [Recovering/Resolving]
